FAERS Safety Report 5551618-4 (Version None)
Quarter: 2007Q4

REPORT INFORMATION
  Report Type: 
  Country: None (occurrence: None)
  Receive Date: 20071129
  Receipt Date: 20070501
  Transmission Date: 20080405
  Serious: Yes (Other)
  Sender: FDA-Public Use
  Company Number: US200606002828

PATIENT
  Age: 49 Year
  Sex: Male
  Weight: 9408 kg

DRUGS (17)
  1. ZYPREXA [Suspect]
     Dosage: 5 MG, 10 MG
     Dates: start: 20050725, end: 20061114
  2. ZYPREXA [Suspect]
     Dosage: 5 MG, 10 MG
     Dates: start: 19980101
  3. ZYPREXA [Suspect]
     Dosage: 5 MG, 10 MG
     Dates: start: 20030709
  4. ARIPIPRAZOLE [Concomitant]
  5. QUETIAPINE FUMARATE [Concomitant]
  6. RISPERIDONE [Concomitant]
  7. HALOPERIDOL [Concomitant]
  8. FLUPHENAZINE DECANOATE [Concomitant]
  9. DIVALPROEX                 (VALPROATE SEMISODIUM) [Concomitant]
  10. LORAZEPAM [Concomitant]
  11. CLONAZEPAM [Concomitant]
  12. GABAPENTIN [Concomitant]
  13. COGENTIN [Concomitant]
  14. BUPROPION HCL [Concomitant]
  15. CELEXA [Concomitant]
  16. FLUVOXAMINE MALEATE [Concomitant]
  17. ESCITALOPRAM OXALATE [Concomitant]

REACTIONS (4)
  - BLOOD TRIGLYCERIDES INCREASED [None]
  - HYPERGLYCAEMIC HYPEROSMOLAR NONKETOTIC SYNDROME [None]
  - HYPERTENSION [None]
  - TYPE 2 DIABETES MELLITUS [None]
